FAERS Safety Report 22605400 (Version 1)
Quarter: 2023Q2

REPORT INFORMATION
  Report Type: Spontaneous
  Country: GB (occurrence: GB)
  Receive Date: 20230615
  Receipt Date: 20230615
  Transmission Date: 20230722
  Serious: Yes (Hospitalization, Other)
  Sender: FDA-Public Use
  Company Number: None

PATIENT
  Sex: Male

DRUGS (8)
  1. RISPERIDONE [Suspect]
     Active Substance: RISPERIDONE
     Indication: Behavioural therapy
     Dosage: 4 MG, ONCE PER DAY
  2. RISPERIDONE [Suspect]
     Active Substance: RISPERIDONE
     Dosage: 2.5 MG, ONCE PER DAY
  3. RISPERIDONE [Suspect]
     Active Substance: RISPERIDONE
     Dosage: UNK,  UNK (WEANING)
  4. ARIPIPRAZOLE [Suspect]
     Active Substance: ARIPIPRAZOLE
     Indication: Behavioural therapy
     Dosage: 8 MG, ONCE PER DAY
  5. ARIPIPRAZOLE [Suspect]
     Active Substance: ARIPIPRAZOLE
     Dosage: 7.5 MG, ONCE PER DAY
  6. MELATONIN [Concomitant]
     Active Substance: MELATONIN
     Indication: Sleep disorder
     Dosage: 6 MG, ONCE PER DAY (EVERY NIGHT)
  7. VALPROATE SODIUM [Concomitant]
     Active Substance: VALPROATE SODIUM
     Indication: Epilepsy
     Dosage: 400 MG, ONCE PER DAY (EVERY MORNING)
  8. VALPROATE SODIUM [Concomitant]
     Active Substance: VALPROATE SODIUM
     Dosage: 700 MG, ONCE PER DAY (EVERY NIGHT)

REACTIONS (4)
  - Oculogyric crisis [Recovered/Resolved]
  - Dopamine dysregulation syndrome [Recovered/Resolved]
  - Parkinsonism [Recovered/Resolved]
  - Extrapyramidal disorder [Recovered/Resolved]
